FAERS Safety Report 23759426 (Version 2)
Quarter: 2024Q4

REPORT INFORMATION
  Report Type: Spontaneous
  Country: US (occurrence: US)
  Receive Date: 20240418
  Receipt Date: 20241024
  Transmission Date: 20250115
  Serious: No
  Sender: ROCHE
  Company Number: US-ROCHE-3378631

PATIENT
  Age: 79 Year
  Sex: Female

DRUGS (3)
  1. ESBRIET [Suspect]
     Active Substance: PIRFENIDONE
     Indication: Product used for unknown indication
     Route: 048
     Dates: start: 202306
  2. ESBRIET [Suspect]
     Active Substance: PIRFENIDONE
     Indication: Product used for unknown indication
     Dosage: 2- AM, 2- AFTERNOON, 1-PM
     Route: 048
     Dates: start: 2023
  3. ESBRIET [Suspect]
     Active Substance: PIRFENIDONE
     Dosage: 1335MG -2 CAPS IN AM, 2 CAPS PM, 1 CAP EVENING
     Route: 048

REACTIONS (2)
  - Rash [Unknown]
  - Fungal infection [Unknown]

NARRATIVE: CASE EVENT DATE: 20240101
